FAERS Safety Report 23198200 (Version 1)
Quarter: 2023Q4

REPORT INFORMATION
  Report Type: Spontaneous
  Country: US (occurrence: None)
  Receive Date: 20231117
  Receipt Date: 20231117
  Transmission Date: 20240109
  Serious: No
  Sender: FDA-Public Use
  Company Number: US-USAntibiotics-000209

PATIENT
  Age: 53 Year
  Sex: Female

DRUGS (2)
  1. AUGMENTIN [Suspect]
     Active Substance: AMOXICILLIN\CLAVULANATE POTASSIUM
     Indication: Product used for unknown indication
     Dosage: TOOK TWICE A DAY FROM 08-AUG-2022 UNTIL THURSDAY
     Route: 048
     Dates: start: 20220808
  2. AUGMENTIN [Suspect]
     Active Substance: AMOXICILLIN\CLAVULANATE POTASSIUM
     Indication: Product used for unknown indication
     Dosage: ONLY TOOK ONE DOSE ON THURSDAY 11 AUG 2023
     Route: 048
     Dates: start: 20220808

REACTIONS (2)
  - Adverse event [Unknown]
  - Condition aggravated [Unknown]

NARRATIVE: CASE EVENT DATE: 20220811
